FAERS Safety Report 16527558 (Version 2)
Quarter: 2019Q3

REPORT INFORMATION
  Report Type: Spontaneous
  Country: US (occurrence: US)
  Receive Date: 20190703
  Receipt Date: 20190807
  Transmission Date: 20191004
  Serious: No
  Sender: FDA-Public Use
  Company Number: US-SA-2019SA179953

PATIENT
  Age: 49 Year
  Sex: Female
  Weight: 49.89 kg

DRUGS (1)
  1. DUPIXENT [Suspect]
     Active Substance: DUPILUMAB
     Indication: ECZEMA
     Dosage: 600 MG, 1X
     Dates: start: 20190701, end: 20190701

REACTIONS (6)
  - Influenza like illness [Unknown]
  - Neutrophil toxic granulation present [Recovered/Resolved]
  - Chills [Unknown]
  - Platelet count increased [Recovered/Resolved]
  - Hyperhidrosis [Unknown]
  - Arthralgia [Unknown]

NARRATIVE: CASE EVENT DATE: 20190701
